FAERS Safety Report 11491159 (Version 1)
Quarter: 2015Q3

REPORT INFORMATION
  Report Type: Spontaneous
  Country: US (occurrence: US)
  Receive Date: 20150910
  Receipt Date: 20150910
  Transmission Date: 20151125
  Serious: No
  Sender: FDA-Public Use
  Company Number: US-JNJFOC-20150810955

PATIENT
  Sex: Female

DRUGS (2)
  1. LEVAQUIN [Suspect]
     Active Substance: LEVOFLOXACIN
     Indication: INFECTION
     Route: 065
  2. FAMPRIDINE [Suspect]
     Active Substance: DALFAMPRIDINE
     Indication: INFECTION
     Route: 048

REACTIONS (2)
  - Urticaria [Unknown]
  - Infection [Unknown]
